FAERS Safety Report 5676015-2 (Version None)
Quarter: 2008Q1

REPORT INFORMATION
  Report Type: 
  Country: None (occurrence: None)
  Receive Date: 20080321
  Receipt Date: 20080311
  Transmission Date: 20080703
  Serious: Yes (Other)
  Sender: FDA-Public Use
  Company Number: US-JNJFOC-20080302593

PATIENT
  Sex: Male
  Weight: 56 kg

DRUGS (3)
  1. REMICADE [Suspect]
     Indication: COLITIS ULCERATIVE
     Route: 042
  2. IMURAN [Concomitant]
     Indication: COLITIS ULCERATIVE
  3. FEMARA [Concomitant]

REACTIONS (3)
  - LIVEDO RETICULARIS [None]
  - PERIPHERAL COLDNESS [None]
  - THROMBOSIS [None]
